FAERS Safety Report 24606101 (Version 1)
Quarter: 2024Q4

REPORT INFORMATION
  Report Type: Report from Study
  Country: US (occurrence: US)
  Receive Date: 20241112
  Receipt Date: 20241112
  Transmission Date: 20250115
  Serious: No
  Sender: ACADIA PHARMACEUTICALS
  Company Number: US-ACADIA PHARMACEUTICALS INC.-ACA-2024-PIM-006617

PATIENT
  Age: 77 Year
  Sex: Male

DRUGS (15)
  1. NUPLAZID [Suspect]
     Active Substance: PIMAVANSERIN TARTRATE
     Indication: Parkinson^s disease
     Dosage: 34 MILLIGRAM, QD
     Route: 048
     Dates: start: 20240925
  2. AUGMENTIN [Concomitant]
     Active Substance: AMOXICILLIN\CLAVULANATE POTASSIUM
  3. AZITHROMYCIN [Concomitant]
     Active Substance: AZITHROMYCIN
     Dosage: 250 MILLIGRAM
  4. BENZONATATE [Concomitant]
     Active Substance: BENZONATATE
     Dosage: 100 MILLIGRAM
  5. CARBIDOPA LEVODOPA [Concomitant]
     Active Substance: CARBIDOPA\LEVODOPA
     Dosage: 25-100
  6. DIAZEPAM [Concomitant]
     Active Substance: DIAZEPAM
     Dosage: 5 MILLIGRAM
  7. DONEPEZIL [Concomitant]
     Active Substance: DONEPEZIL
     Dosage: 10 MILLIGRAM
  8. GABAPENTIN [Concomitant]
     Active Substance: GABAPENTIN
     Dosage: 100 MILLIGRAM
  9. LATANOPROST [Concomitant]
     Active Substance: LATANOPROST
     Dosage: 0.005%
  10. LISINOPRIL [Concomitant]
     Active Substance: LISINOPRIL
     Dosage: 10 MILLIGRAM
  11. MEMANTINE [Concomitant]
     Active Substance: MEMANTINE
     Dosage: 10 MILLIGRAM
  12. MIRTAZAPINE [Concomitant]
     Active Substance: MIRTAZAPINE
     Dosage: 7.5 MILLIGRAM
  13. MOMETASONE [Concomitant]
     Active Substance: MOMETASONE
     Dosage: 0.1%
  14. QUETIAPINE [Concomitant]
     Active Substance: QUETIAPINE
     Dosage: 25 MILLIGRAM
  15. SIMVASTATIN [Concomitant]
     Active Substance: SIMVASTATIN
     Dosage: 10 MILLIGRAM

REACTIONS (3)
  - Muscle rigidity [Unknown]
  - Agitation [Unknown]
  - Confusional state [Unknown]

NARRATIVE: CASE EVENT DATE: 20241008
